FAERS Safety Report 5034368-2 (Version None)
Quarter: 2006Q2

REPORT INFORMATION
  Report Type: 
  Country: None (occurrence: None)
  Receive Date: 20060626
  Receipt Date: 20060612
  Transmission Date: 20061013
  Serious: Yes (Life-Threatening, Hospitalization)
  Sender: FDA-Public Use
  Company Number: DE-ROCHE-451399

PATIENT
  Age: 43 Year
  Sex: Female
  Weight: 86 kg

DRUGS (1)
  1. XENICAL [Suspect]
     Route: 048

REACTIONS (3)
  - FALL [None]
  - ILL-DEFINED DISORDER [None]
  - VENTRICULAR TACHYCARDIA [None]
